FAERS Safety Report 26131766 (Version 2)
Quarter: 2025Q4

REPORT INFORMATION
  Report Type: Spontaneous
  Country: GB (occurrence: GB)
  Receive Date: 20251208
  Receipt Date: 20251229
  Transmission Date: 20260117
  Serious: Yes (Congenital Anomaly, Other)
  Sender: ALEXION PHARMACEUTICALS
  Company Number: None

PATIENT
  Age: 37 Year
  Sex: Female
  Weight: 80 kg

DRUGS (22)
  1. OMEPRAZOLE [Suspect]
     Active Substance: OMEPRAZOLE
     Dosage: 40MG DAILY
     Route: 065
  2. QUETIAPINE FUMARATE [Suspect]
     Active Substance: QUETIAPINE FUMARATE
     Indication: Anxiety
     Dosage: 50 MILLIGRAM
     Route: 065
  3. BECLOMETHASONE DIPROPIONATE [Suspect]
     Active Substance: BECLOMETHASONE DIPROPIONATE
     Indication: Asthma
     Dosage: 200 MICROGRAMS TWICE A DAY
     Route: 065
  4. BECLOMETHASONE DIPROPIONATE [Suspect]
     Active Substance: BECLOMETHASONE DIPROPIONATE
     Indication: Adverse drug reaction
     Dosage: 200 MICROGRAMS TWICE A DAY
  5. DULOXETINE [Suspect]
     Active Substance: DULOXETINE
     Indication: Depression
     Dosage: 60 MILLIGRAM, QD
     Route: 065
  6. DULOXETINE [Suspect]
     Active Substance: DULOXETINE
     Dosage: 60 MILLIGRAM, QD
  7. MIRTAZAPINE [Suspect]
     Active Substance: MIRTAZAPINE
     Indication: Depression
     Dosage: 45 MILLIGRAM AT NIGHT
     Route: 065
  8. MIRTAZAPINE [Suspect]
     Active Substance: MIRTAZAPINE
     Dosage: 45 MILLIGRAM AT NIGHT
     Route: 065
  9. VITAMIN D3 [Suspect]
     Active Substance: CHOLECALCIFEROL
     Indication: Pregnancy
     Dosage: 400UNITS ONCE DAILY
     Route: 065
  10. ENOXAPARIN SODIUM [Suspect]
     Active Substance: ENOXAPARIN SODIUM
     Indication: Pregnancy with advanced maternal age
     Dosage: 40MG DAILY IN 2ND AND 3RD TRIMESTERS
     Route: 065
  11. LACTULOSE [Suspect]
     Active Substance: LACTULOSE
     Indication: Constipation
     Dosage: 2.5ML TWICE A DAY
     Route: 065
  12. POLYETHYLENE GLYCOLS [Suspect]
     Active Substance: POLYETHYLENE GLYCOLS
     Indication: Constipation
     Dosage: 1-2 SACHETS DAILY IN 2ND AND 3RD TRIMESTERS
     Route: 065
  13. DISODIUM HYDROGEN CITRATE\SODIUM LAURYL SULFOACETATE\SORBIC ACID [Suspect]
     Active Substance: DISODIUM HYDROGEN CITRATE\SODIUM LAURYL SULFOACETATE\SORBIC ACID
     Indication: Constipation
     Dosage: 1 AS NEEDED RECTALLY 3RD TRIMESTER ONLY
     Route: 065
  14. SENNA [Suspect]
     Active Substance: SENNOSIDES
     Indication: Constipation
     Dosage: 15MG AT NIGHT WHEN NEEDED IN 1ST AND 3RD TRIMESTER
     Route: 065
  15. ALBUTEROL [Suspect]
     Active Substance: ALBUTEROL
     Indication: Asthma
     Dosage: 2 PUFFS PRN
     Route: 065
  16. ALBUTEROL [Suspect]
     Active Substance: ALBUTEROL
     Indication: Adverse drug reaction
  17. AMOXICILLIN [Concomitant]
     Active Substance: AMOXICILLIN
     Indication: Upper respiratory tract infection
     Dosage: 1 THREE TIMES A DAY  FOR 1 WEEK
     Route: 065
     Dates: start: 20250925, end: 20251002
  18. AMOXICILLIN [Concomitant]
     Active Substance: AMOXICILLIN
     Dosage: 3RD TRIMESTER ONLY
  19. CLOTRIMAZOLE [Suspect]
     Active Substance: CLOTRIMAZOLE
     Indication: Vulvovaginal candidiasis
     Dosage: 200MG AT NIGHT FOR 6 NIGHTS IN 2ND AND 3RD TRIMESTERS
     Route: 065
     Dates: start: 20250804, end: 20250811
  20. FOLIC ACID [Suspect]
     Active Substance: FOLIC ACID
     Indication: Vitamin supplementation
     Dosage: 400 MICROGRAM
     Route: 065
  21. NITROFURANTOIN [Suspect]
     Active Substance: NITROFURANTOIN
     Dosage: IN 1ST TRIMESTER ONLY
     Route: 065
  22. ACETAMINOPHEN [Concomitant]
     Active Substance: ACETAMINOPHEN
     Route: 065

REACTIONS (2)
  - Maternal exposure during pregnancy [Unknown]
  - Foetal malformation [Not Recovered/Not Resolved]

NARRATIVE: CASE EVENT DATE: 20251101
